FAERS Safety Report 4654643-0 (Version None)
Quarter: 2005Q2

REPORT INFORMATION
  Report Type: 
  Country: None (occurrence: None)
  Receive Date: 20050506
  Receipt Date: 20050405
  Transmission Date: 20051028
  Serious: Yes (Other)
  Sender: FDA-Public Use
  Company Number: DO-AMGEN-UK124724

PATIENT
  Age: 56 Year
  Sex: Male
  Weight: 170 kg

DRUGS (1)
  1. NEUPOGEN [Suspect]
     Indication: NEUTROPENIA
     Route: 058
     Dates: start: 20040602, end: 20040602

REACTIONS (6)
  - ARRHYTHMIA [None]
  - CHILLS [None]
  - DYSPNOEA [None]
  - HYPERSENSITIVITY [None]
  - PYREXIA [None]
  - TACHYCARDIA [None]
